FAERS Safety Report 24610311 (Version 2)
Quarter: 2024Q4

REPORT INFORMATION
  Report Type: Spontaneous
  Country: US (occurrence: US)
  Receive Date: 20241112
  Receipt Date: 20241206
  Transmission Date: 20250114
  Serious: No
  Sender: TEVA
  Company Number: US-TEVA-VS-3258620

PATIENT
  Age: 35 Year
  Sex: Female

DRUGS (1)
  1. CEPHALEXIN [Suspect]
     Active Substance: CEPHALEXIN
     Indication: Pseudomonas infection
     Route: 065

REACTIONS (6)
  - Rash [Unknown]
  - Lichenoid keratosis [Unknown]
  - Product use in unapproved indication [Unknown]
  - Skin plaque [Unknown]
  - Product prescribing issue [Unknown]
  - Product use issue [Unknown]
